FAERS Safety Report 7591422-9 (Version None)
Quarter: 2011Q2

REPORT INFORMATION
  Report Type: 
  Country: None (occurrence: None)
  Receive Date: 20110630
  Receipt Date: 20110630
  Transmission Date: 20111010
  Serious: No
  Sender: FDA-Public Use
  Company Number: None

PATIENT

DRUGS (2)
  1. VIVELLE-DOT [Suspect]
     Indication: MENOPAUSAL SYMPTOMS
     Dates: start: 20110401, end: 20110406
  2. VIVELLE-DOT [Suspect]
     Indication: AUTONOMIC NERVOUS SYSTEM IMBALANCE
     Dates: start: 20110401, end: 20110406

REACTIONS (3)
  - BREAST ENGORGEMENT [None]
  - VAGINAL HAEMORRHAGE [None]
  - PRODUCT MEASURED POTENCY ISSUE [None]
